FAERS Safety Report 8541349-0 (Version None)
Quarter: 2012Q3

REPORT INFORMATION
  Report Type: 
  Country: None (occurrence: None)
  Receive Date: 20120726
  Receipt Date: 20110923
  Transmission Date: 20120928
  Serious: No
  Sender: FDA-Public Use
  Company Number: US-ASTRAZENECA-2011SE57326

PATIENT
  Sex: Female

DRUGS (2)
  1. SEROQUEL XR [Suspect]
     Route: 048
  2. OTHER MEDICATIONS [Concomitant]

REACTIONS (3)
  - DIABETES MELLITUS [None]
  - THYROID DISORDER [None]
  - HEADACHE [None]
